FAERS Safety Report 11120225 (Version 1)
Quarter: 2015Q2

REPORT INFORMATION
  Report Type: Spontaneous
  Country: FR (occurrence: FR)
  Receive Date: 20150518
  Receipt Date: 20150518
  Transmission Date: 20150821
  Serious: Yes (Death)
  Sender: FDA-Public Use
  Company Number: FR-PFIZER INC-2015162978

PATIENT
  Age: 4 Year
  Sex: Male
  Weight: 16 kg

DRUGS (11)
  1. COLCHICINE OPOCALCIUM [Suspect]
     Active Substance: COLCHICINE
     Indication: PERICARDITIS
     Dosage: 8 MG, 1X/DAY
     Route: 048
     Dates: start: 20150429, end: 20150430
  2. TEGELINE [Concomitant]
     Active Substance: HUMAN IMMUNOGLOBULIN G
     Dosage: UNK
     Dates: start: 20150417, end: 20150417
  3. PERFALGAN [Concomitant]
     Active Substance: ACETAMINOPHEN
     Dosage: 250 MG, UNK
     Dates: start: 20150409
  4. CLAMOXYL /00249601/ [Concomitant]
     Active Substance: AMOXICILLIN\CLAVULANIC ACID
     Dosage: UNK
     Dates: start: 20150410, end: 20150421
  5. TAZOCILLINE [Concomitant]
     Active Substance: PIPERACILLIN SODIUM\TAZOBACTAM SODIUM
     Dosage: UNK
     Dates: start: 20150430
  6. ZITHROMAX [Suspect]
     Active Substance: AZITHROMYCIN DIHYDRATE
     Dosage: UNK
     Dates: start: 20150430, end: 20150430
  7. ADVIL (MEFENAMIC ACID) [Concomitant]
     Active Substance: MEFENAMIC ACID
     Dosage: UNK
     Dates: start: 20150407
  8. ZITHROMAX [Suspect]
     Active Substance: AZITHROMYCIN DIHYDRATE
     Dosage: 1 DOSE PER WEIGHT
     Dates: start: 20150411, end: 20150413
  9. ASPIRIN /00002701/ [Concomitant]
     Active Substance: ASPIRIN
     Indication: PERICARDITIS
     Dosage: 400 MG, 4X/DAY
     Dates: start: 20150421, end: 20150428
  10. AMIKACINE /00391001/ [Concomitant]
     Active Substance: AMIKACIN
     Dosage: UNK
     Dates: start: 20150430
  11. DOLIPRANE [Concomitant]
     Active Substance: ACETAMINOPHEN
     Dosage: UNK
     Dates: start: 20150407

REACTIONS (5)
  - Vomiting [Fatal]
  - Overdose [Fatal]
  - Cardiac arrest [Fatal]
  - Diarrhoea [Fatal]
  - Drug prescribing error [Fatal]

NARRATIVE: CASE EVENT DATE: 20150430
